FAERS Safety Report 23345194 (Version 1)
Quarter: 2023Q4

REPORT INFORMATION
  Report Type: Spontaneous
  Country: NL (occurrence: NL)
  Receive Date: 20231228
  Receipt Date: 20231228
  Transmission Date: 20240110
  Serious: Yes (Other)
  Sender: FDA-Public Use
  Company Number: NL-CELLTRION HEALTHCARE HUNGARY KFT-2023NL016319

PATIENT
  Age: 84 Year
  Sex: Male

DRUGS (38)
  1. CYCLOPHOSPHAMIDE [Suspect]
     Active Substance: CYCLOPHOSPHAMIDE
     Dosage: 1ST CYCLE (6 CYCLES OF R-MINICHOP)
     Route: 065
  2. CYCLOPHOSPHAMIDE [Suspect]
     Active Substance: CYCLOPHOSPHAMIDE
     Dosage: 2ND CYCLE (6 CYCLES OF R-MINICHOP)
     Route: 065
  3. CYCLOPHOSPHAMIDE [Suspect]
     Active Substance: CYCLOPHOSPHAMIDE
     Indication: Diffuse large B-cell lymphoma stage III
     Dosage: 3RD CYCLE (6 CYCLES OF R-MINICHOP)
     Route: 065
  4. CYCLOPHOSPHAMIDE [Suspect]
     Active Substance: CYCLOPHOSPHAMIDE
     Dosage: 4TH CYCLE (6 CYCLES OF R-MINICHOP)
     Route: 065
  5. CYCLOPHOSPHAMIDE [Suspect]
     Active Substance: CYCLOPHOSPHAMIDE
     Dosage: 5TH CYCLE (6 CYCLES OF R-MINICHOP)
     Route: 065
  6. CYCLOPHOSPHAMIDE [Suspect]
     Active Substance: CYCLOPHOSPHAMIDE
     Dosage: 6TH CYCLE (6 CYCLES OF R-MINICHOP)
     Route: 065
  7. DOXORUBICIN [Suspect]
     Active Substance: DOXORUBICIN
     Indication: Diffuse large B-cell lymphoma stage III
     Dosage: 1ST CYCLE (6 CYCLES OF R-MINICHOP)
     Route: 065
  8. DOXORUBICIN [Suspect]
     Active Substance: DOXORUBICIN
     Dosage: 2ND CYCLE (6 CYCLES OF R-MINICHOP)
     Route: 065
  9. DOXORUBICIN [Suspect]
     Active Substance: DOXORUBICIN
     Dosage: 3RD CYCLE (6 CYCLES OF R-MINICHOP)
     Route: 065
  10. DOXORUBICIN [Suspect]
     Active Substance: DOXORUBICIN
     Dosage: 4TH CYCLE (6 CYCLES OF R-MINICHOP)
     Route: 065
  11. DOXORUBICIN [Suspect]
     Active Substance: DOXORUBICIN
     Dosage: 5TH CYCLE (6 CYCLES OF R-MINICHOP)
     Route: 065
  12. DOXORUBICIN [Suspect]
     Active Substance: DOXORUBICIN
     Dosage: 6TH CYCLE (6 CYCLES OF R-MINICHOP)
     Route: 065
  13. PREDNISOLONE [Suspect]
     Active Substance: PREDNISOLONE
     Dosage: 1ST CYCLE (6 CYCLES OF R-MINICHOP)
     Route: 065
  14. PREDNISOLONE [Suspect]
     Active Substance: PREDNISOLONE
     Dosage: 2ND CYCLE (6 CYCLES OF R-MINICHOP)
     Route: 065
  15. PREDNISOLONE [Suspect]
     Active Substance: PREDNISOLONE
     Indication: Product used for unknown indication
     Dosage: 3RD CYCLE (6 CYCLES OF R-MINICHOP)
     Route: 065
  16. PREDNISOLONE [Suspect]
     Active Substance: PREDNISOLONE
     Dosage: 4TH CYCLE (6 CYCLES OF R-MINICHOP)
     Route: 065
  17. PREDNISOLONE [Suspect]
     Active Substance: PREDNISOLONE
     Dosage: 5TH CYCLE (6 CYCLES OF R-MINICHOP)
     Route: 065
  18. PREDNISOLONE [Suspect]
     Active Substance: PREDNISOLONE
     Dosage: 6TH CYCLE (6 CYCLES OF R-MINICHOP)
     Route: 065
  19. PEGFILGRASTIM [Suspect]
     Active Substance: PEGFILGRASTIM
     Dosage: 1ST (6MG SUBCUTANEOUSLY ON DAY 2 OF EACH CYCLE)
     Route: 058
  20. PEGFILGRASTIM [Suspect]
     Active Substance: PEGFILGRASTIM
     Dosage: 2ND (6MG SUBCUTANEOUSLY ON DAY 2 OF EACH CYCLE)
     Route: 058
  21. PEGFILGRASTIM [Suspect]
     Active Substance: PEGFILGRASTIM
     Dosage: 3RD (6MG SUBCUTANEOUSLY ON DAY 2 OF EACH CYCLE)
     Route: 058
  22. PEGFILGRASTIM [Suspect]
     Active Substance: PEGFILGRASTIM
     Dosage: 4TH (6MG SUBCUTANEOUSLY ON DAY 2 OF EACH CYCLE)
     Route: 058
  23. PEGFILGRASTIM [Suspect]
     Active Substance: PEGFILGRASTIM
     Indication: Diffuse large B-cell lymphoma stage III
     Dosage: 5TH (6MG SUBCUTANEOUSLY ON DAY 2 OF EACH CYCLE)
     Route: 058
  24. PEGFILGRASTIM [Suspect]
     Active Substance: PEGFILGRASTIM
     Dosage: 6TH (6MG SUBCUTANEOUSLY ON DAY 2 OF EACH CYCLE)
     Route: 058
  25. RITUXIMAB [Suspect]
     Active Substance: RITUXIMAB
     Dosage: 1ST CYCLE (6 CYCLES OF R-MINICHOP)
     Route: 065
  26. RITUXIMAB [Suspect]
     Active Substance: RITUXIMAB
     Dosage: 1ST CYCLE OF RITUXIMAB (2 ADDITIONAL CYCLES)
     Route: 065
  27. RITUXIMAB [Suspect]
     Active Substance: RITUXIMAB
     Dosage: 2ND CYCLE (6 CYCLES OF R-MINICHOP)
     Route: 065
  28. RITUXIMAB [Suspect]
     Active Substance: RITUXIMAB
     Dosage: 2ND CYCLE OF RITUXIMAB (2 ADDITIONAL CYCLES)
     Route: 065
  29. RITUXIMAB [Suspect]
     Active Substance: RITUXIMAB
     Dosage: 3RD CYCLE (6 CYCLES OF R-MINICHOP)
     Route: 065
  30. RITUXIMAB [Suspect]
     Active Substance: RITUXIMAB
     Dosage: 4TH CYCLE (6 CYCLES OF R-MINICHOP)
     Route: 065
  31. RITUXIMAB [Suspect]
     Active Substance: RITUXIMAB
     Indication: Diffuse large B-cell lymphoma stage III
     Dosage: 5TH CYCLE (6 CYCLES OF R-MINICHOP)
     Route: 065
  32. RITUXIMAB [Suspect]
     Active Substance: RITUXIMAB
     Dosage: 6TH CYCLE (6 CYCLES OF R-MINICHOP)
     Route: 065
  33. VINCRISTINE [Suspect]
     Active Substance: VINCRISTINE
     Dosage: 1ST CYCLE (6 CYCLES OF R-MINICHOP)
     Route: 065
  34. VINCRISTINE [Suspect]
     Active Substance: VINCRISTINE
     Dosage: 2ND CYCLE (6 CYCLES OF R-MINICHOP)
     Route: 065
  35. VINCRISTINE [Suspect]
     Active Substance: VINCRISTINE
     Dosage: 3RD CYCLE (6 CYCLES OF R-MINICHOP)
     Route: 065
  36. VINCRISTINE [Suspect]
     Active Substance: VINCRISTINE
     Indication: Diffuse large B-cell lymphoma stage III
     Dosage: 4TH CYCLE (6 CYCLES OF R-MINICHOP)
     Route: 065
  37. VINCRISTINE [Suspect]
     Active Substance: VINCRISTINE
     Dosage: 5TH CYCLE (6 CYCLES OF R-MINICHOP)
     Route: 065
  38. VINCRISTINE [Suspect]
     Active Substance: VINCRISTINE
     Dosage: 6TH CYCLE (6 CYCLES OF R-MINICHOP)
     Route: 065

REACTIONS (1)
  - Thrombocytopenia [Recovered/Resolved]
